FAERS Safety Report 23530691 (Version 2)
Quarter: 2024Q2

REPORT INFORMATION
  Report Type: Spontaneous
  Country: US (occurrence: US)
  Receive Date: 20240216
  Receipt Date: 20240620
  Transmission Date: 20240715
  Serious: No
  Sender: FDA-Public Use
  Company Number: US-E2BLSMVVAL-SPO/USA/24/0002505

PATIENT
  Age: 6 Year
  Sex: Male

DRUGS (2)
  1. JAVYGTOR [Suspect]
     Active Substance: SAPROPTERIN DIHYDROCHLORIDE
     Indication: Phenylketonuria
     Dosage: TAKE FOUR 100MG POWDER PACKETS BY MOUTH DAILY AS DIRECTED WITH A MEAL FOR A TOTAL DOSE OF 400 MG DAI
     Route: 048
  2. TYROSINE [Concomitant]
     Active Substance: TYROSINE
     Indication: Product used for unknown indication

REACTIONS (1)
  - Increased appetite [Unknown]
